FAERS Safety Report 5705623-5 (Version None)
Quarter: 2008Q2

REPORT INFORMATION
  Report Type: 
  Country: None (occurrence: None)
  Receive Date: 20080411
  Receipt Date: 20080401
  Transmission Date: 20081010
  Serious: Yes (Hospitalization)
  Sender: FDA-Public Use
  Company Number: 2008AL001978

PATIENT
  Age: 64 Year
  Sex: Female

DRUGS (3)
  1. METFORMIN HYDROCHLORIDE [Suspect]
     Indication: TYPE 2 DIABETES MELLITUS
     Dosage: 500 MG; BID;
  2. LISINOPRIL [Concomitant]
  3. IBUPROFEN [Concomitant]

REACTIONS (16)
  - BLOOD CREATININE INCREASED [None]
  - BLOOD PHOSPHORUS INCREASED [None]
  - BLOOD URINE PRESENT [None]
  - DISTURBANCE IN ATTENTION [None]
  - HAEMODIALYSIS [None]
  - HEPATIC ENZYME INCREASED [None]
  - HYPOTENSION [None]
  - HYPOTHERMIA [None]
  - LACTIC ACIDOSIS [None]
  - METABOLIC ACIDOSIS [None]
  - NAUSEA [None]
  - PCO2 DECREASED [None]
  - RENAL INJURY [None]
  - RESPIRATORY FAILURE [None]
  - TACHYPNOEA [None]
  - VOMITING [None]
